FAERS Safety Report 6759693-6 (Version None)
Quarter: 2010Q2

REPORT INFORMATION
  Report Type: 
  Country: None (occurrence: None)
  Receive Date: 20100604
  Receipt Date: 20100524
  Transmission Date: 20101027
  Serious: Yes (Death)
  Sender: FDA-Public Use
  Company Number: 009155

PATIENT
  Age: 56 Year
  Sex: Male

DRUGS (12)
  1. BUSULFEX (BUSULFAN) INJECTIONI [Suspect]
     Indication: STEM CELL TRANSPLANT
     Dosage: 42 MG DAILY DOSE INTRAVENOUS
     Route: 042
     Dates: start: 20080227, end: 20080228
  2. FLUDARABINE PHOSPHATE [Suspect]
     Indication: STEM CELL TRANSPLANT
     Dosage: 45 MG DAILY DOSE INTRAVENOUS
     Route: 042
     Dates: start: 20080226, end: 20080302
  3. TACROLIMUS [Suspect]
     Indication: PROPHYLAXIS
     Dosage: 1.6 MG DAILY DOSE INTRAVENOUS
     Route: 042
     Dates: start: 20080304
  4. METHOTREXATE [Suspect]
     Indication: PROPHYLAXIS
     Dosage: 15 MG DAILY DOSE INTRAVENOUS; 10 MG DAILY DOSE INTRAVENOUS; 10 MG DAILY DOSE INTRAVENOUS
     Route: 042
     Dates: start: 20080306, end: 20080306
  5. METHOTREXATE [Suspect]
     Indication: PROPHYLAXIS
     Dosage: 15 MG DAILY DOSE INTRAVENOUS; 10 MG DAILY DOSE INTRAVENOUS; 10 MG DAILY DOSE INTRAVENOUS
     Route: 042
     Dates: start: 20080308, end: 20080308
  6. METHOTREXATE [Suspect]
     Indication: PROPHYLAXIS
     Dosage: 15 MG DAILY DOSE INTRAVENOUS; 10 MG DAILY DOSE INTRAVENOUS; 10 MG DAILY DOSE INTRAVENOUS
     Route: 042
     Dates: start: 20080311, end: 20080311
  7. DEPAKENE [Concomitant]
  8. LENOGRASTIM (LENOGRASTIM) [Concomitant]
  9. CEFEPIME HYDROCHLORIDE [Concomitant]
  10. MEROPENEM [Concomitant]
  11. VANCOMYCIN [Concomitant]
  12. INTRALIPOS 10 (SOYA OIL) [Concomitant]

REACTIONS (2)
  - CEREBRAL INFARCTION [None]
  - LOBAR PNEUMONIA [None]
